FAERS Safety Report 13578826 (Version 1)
Quarter: 2017Q2

REPORT INFORMATION
  Report Type: Spontaneous
  Country: US (occurrence: US)
  Receive Date: 20170524
  Receipt Date: 20170524
  Transmission Date: 20170830
  Serious: No
  Sender: FDA-Public Use
  Company Number: US-JAZZ-2017-US-004524

PATIENT
  Sex: Female

DRUGS (22)
  1. XYREM [Suspect]
     Active Substance: SODIUM OXYBATE
     Indication: NARCOLEPSY
     Dosage: 4.5G, BID
     Route: 048
     Dates: start: 201105, end: 2011
  2. XYREM [Suspect]
     Active Substance: SODIUM OXYBATE
     Indication: CATAPLEXY
     Dosage: DOSE ADJUSTMENT
     Route: 048
     Dates: start: 2015, end: 2015
  3. NARATRIPTAN HCL [Concomitant]
     Active Substance: NARATRIPTAN HYDROCHLORIDE
  4. GABAPENTIN. [Concomitant]
     Active Substance: GABAPENTIN
  5. NITROFURANTOIN. [Concomitant]
     Active Substance: NITROFURANTOIN
  6. PHENERGAN [Concomitant]
     Active Substance: PROMETHAZINE HYDROCHLORIDE
  7. CYMBALTA [Concomitant]
     Active Substance: DULOXETINE HYDROCHLORIDE
  8. BACLOFEN. [Concomitant]
     Active Substance: BACLOFEN
  9. TRAZODONE [Concomitant]
     Active Substance: TRAZODONE HYDROCHLORIDE
  10. XYREM [Suspect]
     Active Substance: SODIUM OXYBATE
     Dosage: 4.5 G, BID
     Route: 048
     Dates: start: 201510
  11. SYNTHROID [Concomitant]
     Active Substance: LEVOTHYROXINE SODIUM
  12. VITAMIN D                          /00107901/ [Concomitant]
     Active Substance: ERGOCALCIFEROL
  13. LYRICA [Concomitant]
     Active Substance: PREGABALIN
  14. MELOXICAM. [Concomitant]
     Active Substance: MELOXICAM
  15. NAPROXEN. [Concomitant]
     Active Substance: NAPROXEN
  16. TOPAMAX [Concomitant]
     Active Substance: TOPIRAMATE
  17. MODAFINIL. [Concomitant]
     Active Substance: MODAFINIL
  18. METOPROLOL TARTRATE. [Concomitant]
     Active Substance: METOPROLOL TARTRATE
  19. TIZANIDINE HCL [Concomitant]
     Active Substance: TIZANIDINE HYDROCHLORIDE
  20. MAXALT-MLT [Concomitant]
     Active Substance: RIZATRIPTAN BENZOATE
  21. DIAMOX                             /00016901/ [Concomitant]
     Active Substance: ACETAZOLAMIDE
  22. NAPROSYN [Concomitant]
     Active Substance: NAPROXEN

REACTIONS (1)
  - Viral upper respiratory tract infection [Not Recovered/Not Resolved]
